FAERS Safety Report 20006127 (Version 2)
Quarter: 2021Q4

REPORT INFORMATION
  Report Type: Spontaneous
  Country: IN (occurrence: IN)
  Receive Date: 20211028
  Receipt Date: 20211103
  Transmission Date: 20220303
  Serious: Yes (Hospitalization, Other)
  Sender: FDA-Public Use
  Company Number: IN-MACLEODS PHARMACEUTICALS US LTD-MAC2021033105

PATIENT

DRUGS (7)
  1. TRIAMCINOLONE ACETONIDE [Suspect]
     Active Substance: TRIAMCINOLONE ACETONIDE
     Indication: Optic neuritis
     Dosage: 40 MILLIGRAM, POSTERIOR SUBTENON (PST) (INJECTION)
     Route: 047
  2. PREDNISOLONE [Suspect]
     Active Substance: PREDNISOLONE
     Indication: Pemphigus
     Dosage: 40 MILLIGRAM
     Route: 048
  3. CYCLOPHOSPHAMIDE [Suspect]
     Active Substance: CYCLOPHOSPHAMIDE
     Indication: Pemphigus
     Dosage: 200 MILLIGRAM
     Route: 065
  4. GANCICLOVIR [Suspect]
     Active Substance: GANCICLOVIR
     Indication: Cytomegalovirus chorioretinitis
     Dosage: 2 MILLIGRAM, 0.1 ML
  5. GANCICLOVIR [Suspect]
     Active Substance: GANCICLOVIR
     Dosage: 4 MILLIGRAM, 0.1 ML
  6. GANCICLOVIR [Suspect]
     Active Substance: GANCICLOVIR
     Dosage: 4 MILLIGRAM, 0.1 ML
  7. GANCICLOVIR [Suspect]
     Active Substance: GANCICLOVIR
     Dosage: 4 MILLIGRAM, 0.1 ML

REACTIONS (9)
  - Cytomegalovirus chorioretinitis [Recovered/Resolved]
  - Retinal haemorrhage [Recovered/Resolved]
  - Necrotising retinitis [Recovered/Resolved]
  - Ophthalmic herpes simplex [Recovering/Resolving]
  - Retinal occlusive vasculitis [Recovered/Resolved]
  - Retinitis viral [Recovered/Resolved]
  - Optic atrophy [Unknown]
  - Condition aggravated [Recovering/Resolving]
  - Optic neuritis [Recovering/Resolving]
